FAERS Safety Report 6189306-6 (Version None)
Quarter: 2009Q2

REPORT INFORMATION
  Report Type: 
  Country: None (occurrence: None)
  Receive Date: 20090512
  Receipt Date: 20090428
  Transmission Date: 20091009
  Serious: Yes (Death, Hospitalization)
  Sender: FDA-Public Use
  Company Number: TPA2009A00810

PATIENT
  Age: 91 Year
  Sex: Male
  Weight: 68.4 kg

DRUGS (7)
  1. ULORIC [Suspect]
     Indication: BLOOD URIC ACID INCREASED
     Dosage: 40 MG, 1 IN 1 D, ORAL
     Route: 048
     Dates: start: 20090416
  2. ULORIC [Suspect]
     Indication: INFLAMMATION
     Dosage: 40 MG, 1 IN 1 D, ORAL
     Route: 048
     Dates: start: 20090416
  3. ENALAPRIL MALEATE [Concomitant]
  4. POTASSIUM CHLORIDE [Concomitant]
  5. ISMO [Concomitant]
  6. LASIX [Concomitant]
  7. ZOCOR [Concomitant]

REACTIONS (2)
  - CHEST X-RAY ABNORMAL [None]
  - MYOCARDIAL INFARCTION [None]
